FAERS Safety Report 19876901 (Version 1)
Quarter: 2021Q3

REPORT INFORMATION
  Report Type: Spontaneous
  Country: DE (occurrence: DE)
  Receive Date: 20210924
  Receipt Date: 20210924
  Transmission Date: 20211014
  Serious: Yes (Other)
  Sender: FDA-Public Use
  Company Number: DE-TEVA-2021-DE-1955922

PATIENT
  Age: 6 Year
  Sex: Female

DRUGS (1)
  1. VALPROAT [Suspect]
     Active Substance: VALPROATE SODIUM
     Dosage: 500 MILLIGRAM DAILY; EXPOSURE THROUGHOUT PREGNANCY
     Route: 064

REACTIONS (8)
  - Foetal exposure during pregnancy [Unknown]
  - Mental impairment [Recovering/Resolving]
  - Attention deficit hyperactivity disorder [Recovering/Resolving]
  - Emotional disorder [Recovering/Resolving]
  - Developmental delay [Recovering/Resolving]
  - Behaviour disorder [Recovering/Resolving]
  - Disturbance in social behaviour [Recovering/Resolving]
  - Speech disorder developmental [Recovering/Resolving]
